FAERS Safety Report 25032414 (Version 1)
Quarter: 2025Q1

REPORT INFORMATION
  Report Type: Spontaneous
  Country: US (occurrence: None)
  Receive Date: 20250226
  Receipt Date: 20250226
  Transmission Date: 20250409
  Serious: Yes (Hospitalization)
  Sender: FDA-CTU
  Company Number: None

PATIENT
  Age: 59 Year
  Sex: Female

DRUGS (1)
  1. XCOPRI [Suspect]
     Active Substance: CENOBAMATE
     Dosage: FREQUENCY : DAILY;?
     Route: 048
     Dates: start: 20210324

REACTIONS (6)
  - Fall [None]
  - Hand fracture [None]
  - Rib fracture [None]
  - Spinal compression fracture [None]
  - Pelvic fracture [None]
  - Fractured sacrum [None]

NARRATIVE: CASE EVENT DATE: 20250125
